FAERS Safety Report 6492270-3 (Version None)
Quarter: 2009Q4

REPORT INFORMATION
  Report Type: 
  Country: None (occurrence: None)
  Receive Date: 20091214
  Receipt Date: 20091210
  Transmission Date: 20100525
  Serious: Yes (Death)
  Sender: FDA-Public Use
  Company Number: PHHY2009NZ50811

PATIENT
  Sex: Male

DRUGS (13)
  1. CLOZARIL [Suspect]
     Indication: SCHIZOPHRENIA
     Dosage: 50 MG AT 5PM AND 25 MG NOCTE
     Dates: start: 19990702
  2. CLOZARIL [Suspect]
     Indication: PARKINSON'S DISEASE
  3. SINEMET [Concomitant]
     Indication: PARKINSON'S DISEASE
     Dosage: 25/100 1 TABLET TDS + 1/2 TABLET NOCT
  4. ASPIRIN [Concomitant]
     Indication: CARDIOVASCULAR DISORDER
     Dosage: 100MG 1 TABLET MANE
  5. OMEPRAZOLE [Concomitant]
     Indication: GASTROOESOPHAGEAL REFLUX DISEASE
     Dosage: 20MG 1 TABLET MANE
  6. LAXSOL [Concomitant]
     Indication: CONSTIPATION
     Dosage: 2 TABLETS MANE
  7. NITROFURANTOIN [Concomitant]
     Indication: URINARY TRACT INFECTION
     Dosage: 100MG 1 TABLET NOCTE
  8. BISACODYL [Concomitant]
     Indication: CONSTIPATION
     Dosage: 2 TABLETS BID
  9. METOPROLOL [Concomitant]
     Indication: CARDIAC FAILURE
     Dosage: 25 MG ; 75MG MANE
  10. PARACETAMOL [Concomitant]
     Dosage: PRN
  11. LACTULOSE [Concomitant]
     Dosage: PRN
  12. ALBUTEROL [Concomitant]
     Dosage: PRN
  13. SODIUM PHOSPHATES [Concomitant]
     Dosage: PRN

REACTIONS (4)
  - HAEMOGLOBIN INCREASED [None]
  - LOSS OF CONSCIOUSNESS [None]
  - MYOCARDIAL INFARCTION [None]
  - NEUTROPHIL COUNT INCREASED [None]
